FAERS Safety Report 13521038 (Version 2)
Quarter: 2018Q1

REPORT INFORMATION
  Report Type: Spontaneous
  Country: IT (occurrence: IT)
  Receive Date: 20170508
  Receipt Date: 20180310
  Transmission Date: 20180508
  Serious: Yes (Hospitalization)
  Sender: FDA-Public Use
  Company Number: IT-SUN PHARMACEUTICAL INDUSTRIES LTD-2017RR-139676

PATIENT
  Age: 66 Year
  Sex: Male

DRUGS (4)
  1. ETHYL ALCOHOL [Concomitant]
     Active Substance: ALCOHOL
     Indication: PRODUCT USED FOR UNKNOWN INDICATION
     Dosage: UNK
     Route: 065
  2. LORAZEPAM. [Suspect]
     Active Substance: LORAZEPAM
     Indication: DRUG ABUSE
     Dosage: 27.5 MG TOTAL
     Route: 048
     Dates: start: 20170328, end: 20170328
  3. ALPRAZOLAM. [Suspect]
     Active Substance: ALPRAZOLAM
     Indication: DRUG ABUSE
     Dosage: 20 MG TOTAL
     Route: 048
     Dates: start: 20170328, end: 20170328
  4. LAROXYL 40MG/ML [Suspect]
     Active Substance: AMITRIPTYLINE HYDROCHLORIDE
     Indication: DRUG ABUSE
     Dosage: 10 ML TOTAL
     Route: 048
     Dates: start: 20170328, end: 20170328

REACTIONS (3)
  - Tachycardia [Unknown]
  - Sopor [Unknown]
  - Drug abuse [Unknown]

NARRATIVE: CASE EVENT DATE: 20170328
